FAERS Safety Report 22226208 (Version 2)
Quarter: 2023Q2

REPORT INFORMATION
  Report Type: Spontaneous
  Country: EG (occurrence: EG)
  Receive Date: 20230419
  Receipt Date: 20230425
  Transmission Date: 20230721
  Serious: Yes (Hospitalization)
  Sender: FDA-Public Use
  Company Number: EG-NOVOPROD-1049978

PATIENT
  Sex: Male
  Weight: 104 kg

DRUGS (14)
  1. INSULIN HUMAN [Suspect]
     Active Substance: INSULIN HUMAN
     Indication: Product used for unknown indication
     Dosage: 60 IU, QD(40U MORNING- 20U NIGHT)
     Route: 058
     Dates: start: 202103
  2. ASPIRIN [Concomitant]
     Active Substance: ASPIRIN
     Indication: Abdominal distension
     Dosage: 100 MG (2 TABLETS)
     Route: 048
     Dates: start: 202107
  3. BISOPROLOL FUMARATE [Concomitant]
     Active Substance: BISOPROLOL FUMARATE
     Indication: Hypertension
     Dosage: 5 MG(2 TABLETS )
     Route: 048
     Dates: start: 202103
  4. GLUCOVANCE [GLIBENCLAMIDE;METFORMIN] [Concomitant]
     Indication: Type 2 diabetes mellitus
     Dosage: 500 MG /2,5ML (1 TABLET  )
     Route: 048
     Dates: start: 202103
  5. VILDAGLIPTIN [Concomitant]
     Active Substance: VILDAGLIPTIN
     Indication: Type 2 diabetes mellitus
     Dosage: 1000 MG(2 TABLETS )
     Route: 048
     Dates: start: 202103
  6. BENFOTIAMINE\CYANOCOBALAMIN\PYRIDOXINE HYDROCHLORIDE [Concomitant]
     Active Substance: BENFOTIAMINE\CYANOCOBALAMIN\PYRIDOXINE HYDROCHLORIDE
     Indication: Neuropathy peripheral
     Dosage: 1 TABLET
     Route: 048
  7. BIOVIT [ALFACALCIDOL] [Concomitant]
     Indication: Neuropathy peripheral
     Dosage: 1 INJECTION EVERY ONE WEEK
  8. BIOVIT [ALFACALCIDOL] [Concomitant]
     Indication: Type 2 diabetes mellitus
  9. LORATADINE [Concomitant]
     Active Substance: LORATADINE
     Indication: Hypersensitivity
     Dosage: 1 TABLET
     Route: 048
     Dates: start: 2020
  10. ATORVASTATIN CALCIUM [Concomitant]
     Active Substance: ATORVASTATIN CALCIUM
     Indication: Blood triglycerides abnormal
     Dosage: UNK(1 TABLET )
     Route: 048
     Dates: start: 202107
  11. TEGRETOL [Concomitant]
     Active Substance: CARBAMAZEPINE
     Indication: Nervousness
     Dosage: 200 MG (1 AND HALF TABLET )
     Route: 048
  12. TEGRETOL [Concomitant]
     Active Substance: CARBAMAZEPINE
     Indication: Mental disorder
  13. TUSSKAN [Concomitant]
     Indication: Lower respiratory tract infection
     Dosage: 2 SPATULA PER DAY BUT AS PER NEED
     Route: 048
     Dates: start: 202107
  14. COLOVERIN [Concomitant]
     Indication: Colitis
     Dosage: UNK(1 TAB PER DAY )
     Route: 048

REACTIONS (7)
  - Cardiac operation [Recovered/Resolved]
  - Muscle contractions involuntary [Not Recovered/Not Resolved]
  - Myositis [Not Recovered/Not Resolved]
  - Abdominal distension [Not Recovered/Not Resolved]
  - Weight increased [Not Recovered/Not Resolved]
  - Hypoglycaemia [Not Recovered/Not Resolved]
  - Blood glucose increased [Unknown]

NARRATIVE: CASE EVENT DATE: 20210501
